FAERS Safety Report 9486494 (Version 1)
Quarter: 2013Q3

REPORT INFORMATION
  Report Type: Spontaneous
  Country: US (occurrence: None)
  Receive Date: 20130827
  Receipt Date: 20130827
  Transmission Date: 20140515
  Serious: Yes (Disabling)
  Sender: FDA-Public Use
  Company Number: None

PATIENT
  Age: 33 Year
  Sex: Female
  Weight: 52.16 kg

DRUGS (1)
  1. MEFLOQUINE HCL [Suspect]
     Indication: MALARIA PROPHYLAXIS
     Route: 048
     Dates: start: 20130714, end: 20130728

REACTIONS (8)
  - Musculoskeletal pain [None]
  - Paraesthesia [None]
  - Headache [None]
  - Diarrhoea [None]
  - Pain in extremity [None]
  - Feeling abnormal [None]
  - Hypoaesthesia [None]
  - Arnold-Chiari malformation [None]
